FAERS Safety Report 14453807 (Version 2)
Quarter: 2018Q2

REPORT INFORMATION
  Report Type: Spontaneous
  Country: DE (occurrence: DE)
  Receive Date: 20180129
  Receipt Date: 20180409
  Transmission Date: 20180711
  Serious: Yes (Hospitalization)
  Sender: FDA-Public Use
  Company Number: DE-SA-2018SA017281

PATIENT

DRUGS (1)
  1. LEMTRADA [Suspect]
     Active Substance: ALEMTUZUMAB
     Indication: RELAPSING-REMITTING MULTIPLE SCLEROSIS
     Route: 041
     Dates: start: 20170814, end: 20170818

REACTIONS (36)
  - Urobilinogen urine increased [Unknown]
  - Protein urine present [Unknown]
  - C-reactive protein increased [Unknown]
  - Haematoma [Unknown]
  - Mean cell volume increased [Recovered/Resolved]
  - Bacterial test [Unknown]
  - Alanine aminotransferase increased [Not Recovered/Not Resolved]
  - Yellow skin [Unknown]
  - Therapeutic response decreased [Recovering/Resolving]
  - Lipase increased [Unknown]
  - Chromaturia [Unknown]
  - Haptoglobin decreased [Unknown]
  - White blood cell count decreased [Unknown]
  - Mean cell haemoglobin increased [Recovered/Resolved]
  - Blood calcium decreased [Unknown]
  - Activated partial thromboplastin time prolonged [Recovered/Resolved]
  - Sleep disorder [Unknown]
  - Fatigue [Unknown]
  - Abdominal pain [Unknown]
  - Mean cell haemoglobin concentration decreased [Recovered/Resolved]
  - Limb discomfort [Unknown]
  - Blood bilirubin increased [Not Recovered/Not Resolved]
  - Oedema peripheral [Unknown]
  - Performance status decreased [Unknown]
  - Red blood cell count decreased [Not Recovered/Not Resolved]
  - Blood albumin decreased [Unknown]
  - Lymphocyte percentage decreased [Unknown]
  - Blood glucose increased [Unknown]
  - Blood alkaline phosphatase increased [Unknown]
  - Gamma-glutamyltransferase increased [Not Recovered/Not Resolved]
  - Oedema [Unknown]
  - Hepatitis B [Recovering/Resolving]
  - Bowel movement irregularity [Unknown]
  - Haemoglobin decreased [Not Recovered/Not Resolved]
  - Aspartate aminotransferase increased [Not Recovered/Not Resolved]
  - Jaundice [Unknown]

NARRATIVE: CASE EVENT DATE: 20171201
